FAERS Safety Report 6900277-4 (Version None)
Quarter: 2010Q3

REPORT INFORMATION
  Report Type: 
  Country: None (occurrence: None)
  Receive Date: 20100803
  Receipt Date: 20100721
  Transmission Date: 20110219
  Serious: Yes (Death, Hospitalization)
  Sender: FDA-Public Use
  Company Number: DE-ROCHE-718298

PATIENT
  Sex: Female

DRUGS (10)
  1. TOCILIZUMAB [Suspect]
     Indication: RHEUMATOID ARTHRITIS
     Route: 065
     Dates: start: 20090201, end: 20090801
  2. ORENCIA [Suspect]
     Indication: RHEUMATOID ARTHRITIS
     Route: 042
     Dates: start: 20090901, end: 20100301
  3. PREDNISOLON [Concomitant]
     Indication: RHEUMATOID ARTHRITIS
  4. AMITRIPTYLINE HCL [Concomitant]
  5. DIOVAN HCT [Concomitant]
  6. OMEPRAZOLE [Concomitant]
  7. VALORON [Concomitant]
  8. CELEBREX [Concomitant]
  9. CALCICARE D3 [Concomitant]
  10. MESALAMINE [Concomitant]

REACTIONS (4)
  - ENCEPHALITIS [None]
  - ENDOCARDITIS [None]
  - MULTI-ORGAN FAILURE [None]
  - SEPSIS [None]
